FAERS Safety Report 12797872 (Version 1)
Quarter: 2016Q3

REPORT INFORMATION
  Report Type: Other
  Country: GB (occurrence: GB)
  Receive Date: 20160930
  Receipt Date: 20160930
  Transmission Date: 20161109
  Serious: Yes (Hospitalization)
  Sender: FDA-Public Use
  Company Number: GB-LUPIN PHARMACEUTICALS INC.-E2B_00004910

PATIENT
  Sex: Female

DRUGS (2)
  1. PIVMECILLINAM [Suspect]
     Active Substance: PENICILLIN
     Indication: URINARY TRACT INFECTION
     Route: 048
     Dates: start: 201601, end: 201601
  2. CEFALEXIN [Suspect]
     Active Substance: CEPHALEXIN
     Indication: URINARY TRACT INFECTION
     Route: 048
     Dates: start: 201601, end: 201601

REACTIONS (1)
  - Hallucinations, mixed [Recovered/Resolved]

NARRATIVE: CASE EVENT DATE: 201601
